FAERS Safety Report 11965278 (Version 1)
Quarter: 2016Q1

REPORT INFORMATION
  Report Type: Spontaneous
  Country: US (occurrence: US)
  Receive Date: 20160127
  Receipt Date: 20160127
  Transmission Date: 20160526
  Serious: No
  Sender: FDA-Public Use
  Company Number: US-BAYER-2016-016030

PATIENT
  Age: 93 Year
  Sex: Male
  Weight: 70.3 kg

DRUGS (3)
  1. MIRALAX [Suspect]
     Active Substance: POLYETHYLENE GLYCOL 3350
     Indication: CONSTIPATION
     Dosage: 1 DF, QD
     Route: 048
     Dates: start: 2014
  2. INSULIN [Concomitant]
     Active Substance: INSULIN NOS
  3. MIRALAX [Suspect]
     Active Substance: POLYETHYLENE GLYCOL 3350
     Indication: CONSTIPATION
     Dosage: 0.5 TEASPOON, HS
     Route: 048
     Dates: start: 2014

REACTIONS (4)
  - Product use issue [None]
  - Faeces soft [None]
  - Product use issue [None]
  - Frequent bowel movements [None]

NARRATIVE: CASE EVENT DATE: 2014
